FAERS Safety Report 14250413 (Version 1)
Quarter: 2017Q4

REPORT INFORMATION
  Report Type: Spontaneous
  Country: US (occurrence: US)
  Receive Date: 20171205
  Receipt Date: 20171205
  Transmission Date: 20180321
  Serious: No
  Sender: FDA-Public Use
  Company Number: US-TEVA-776569ACC

PATIENT
  Age: 55 Year
  Sex: Female

DRUGS (3)
  1. AMITRIPTYLINE ACCORD [Suspect]
     Active Substance: AMITRIPTYLINE
     Route: 065
  2. ALPRAZOLAM ACTAVIS [Suspect]
     Active Substance: ALPRAZOLAM
     Route: 065
  3. ATENOLOL SANDOZ [Suspect]
     Active Substance: ATENOLOL
     Route: 065

REACTIONS (3)
  - Irritability [Unknown]
  - Feeling abnormal [Unknown]
  - Hypoaesthesia [Unknown]
